FAERS Safety Report 7655941-9 (Version None)
Quarter: 2011Q3

REPORT INFORMATION
  Report Type: 
  Country: None (occurrence: None)
  Receive Date: 20110729
  Receipt Date: 20110716
  Transmission Date: 20111222
  Serious: Yes (Other)
  Sender: FDA-Public Use
  Company Number: 2011AP001521

PATIENT
  Age: 22 Month
  Sex: Female

DRUGS (1)
  1. GLIPIZIDE [Suspect]

REACTIONS (2)
  - HYPOGLYCAEMIA [None]
  - TOXICITY TO VARIOUS AGENTS [None]
